FAERS Safety Report 4278303-3 (Version None)
Quarter: 2004Q1

REPORT INFORMATION
  Report Type: 
  Country: None (occurrence: None)
  Receive Date: 20040121
  Receipt Date: 20040121
  Transmission Date: 20041129
  Serious: No
  Sender: FDA-Public Use
  Company Number: None

PATIENT
  Age: 40 Year
  Sex: Female
  Weight: 73.0291 kg

DRUGS (11)
  1. TRETINOIN [Suspect]
     Dosage: 45MG/M2 QD - PO
     Route: 048
     Dates: start: 20031126, end: 20031208
  2. CYTARABINE [Suspect]
     Dosage: 200 MG/M2 IV QD X 7 DAYS
     Route: 042
     Dates: start: 20031229, end: 20031206
  3. DECADRON EYE DROPS [Concomitant]
  4. PROTONIX [Concomitant]
  5. PRIMAXIN [Concomitant]
  6. ZOSYN [Concomitant]
  7. ZOFRAN [Concomitant]
  8. PROZAC [Concomitant]
  9. ALLOPURINOL [Concomitant]
  10. FLAGYL [Concomitant]
  11. ATIVAN [Concomitant]

REACTIONS (1)
  - ALANINE AMINOTRANSFERASE INCREASED [None]
